FAERS Safety Report 22651709 (Version 1)
Quarter: 2023Q2

REPORT INFORMATION
  Report Type: Spontaneous
  Country: US (occurrence: None)
  Receive Date: 20230627
  Receipt Date: 20230627
  Transmission Date: 20230722
  Serious: Yes (Other)
  Sender: FDA-Public Use
  Company Number: None

PATIENT
  Age: 66 Year
  Sex: Female

DRUGS (1)
  1. TEZSPIRE [Suspect]
     Active Substance: TEZEPELUMAB-EKKO
     Indication: Asthma
     Dosage: 210 MG/1.9ML  SUBCUTANEOUS??INJECT 1 PEN (210 MG) UNDER THE SKIN (SUBCUTANEOUS INJECTION) EVERY 4 WE
     Route: 058

REACTIONS (2)
  - Impaired quality of life [None]
  - Asthma [None]

NARRATIVE: CASE EVENT DATE: 20230627
